FAERS Safety Report 8838281 (Version 1)
Quarter: 2012Q4

REPORT INFORMATION
  Report Type: 
  Country: US (occurrence: US)
  Receive Date: 20121012
  Receipt Date: 20121012
  Transmission Date: 20130627
  Serious: Yes (Hospitalization)
  Sender: FDA-Public Use
  Company Number: US-GLAXOSMITHKLINE-A0776260A

PATIENT
  Sex: Male
  Weight: 118.2 kg

DRUGS (2)
  1. AVANDAMET [Suspect]
     Indication: TYPE 2 DIABETES MELLITUS
     Dosage: 1TAB Per day
     Route: 048
     Dates: start: 20050228, end: 200608
  2. AVANDIA [Suspect]
     Indication: TYPE 2 DIABETES MELLITUS
     Dosage: 8MG Per day
     Route: 048
     Dates: start: 20060808, end: 2007

REACTIONS (12)
  - Diabetes mellitus [Unknown]
  - Visual acuity reduced [Unknown]
  - Oedema peripheral [Unknown]
  - Weight increased [Unknown]
  - Decreased appetite [Unknown]
  - Fatigue [Unknown]
  - Abdominal pain upper [Unknown]
  - Chest pain [Unknown]
  - Fluid retention [Unknown]
  - Asthenia [Unknown]
  - Eye disorder [Unknown]
  - Dyspnoea [Unknown]
